FAERS Safety Report 17558820 (Version 1)
Quarter: 2020Q1

REPORT INFORMATION
  Report Type: Spontaneous
  Country: CN (occurrence: CN)
  Receive Date: 20200318
  Receipt Date: 20200318
  Transmission Date: 20200409
  Serious: Yes (Other)
  Sender: FDA-Public Use
  Company Number: CN-BAXTER-2020BAX006163

PATIENT
  Age: 70 Year
  Sex: Female
  Weight: 43 kg

DRUGS (4)
  1. 5% GLUCOSE  INJECTION [Suspect]
     Active Substance: DEXTROSE
     Indication: MEDICATION DILUTION
     Dosage: CYCLOPHOSPHAMIDE 0.8 G + 5% GS 250 ML
     Route: 041
     Dates: start: 20200206, end: 20200206
  2. ENDOXAN [Suspect]
     Active Substance: CYCLOPHOSPHAMIDE
     Indication: BREAST CANCER FEMALE
     Dosage: CYCLOPHOSPHAMIDE 0.8 G + 5% GS 250 ML
     Route: 041
     Dates: start: 20200206, end: 20200206
  3. 5% GLUCOSE  INJECTION [Suspect]
     Active Substance: DEXTROSE
     Dosage: 5% GS 500 ML + AI SU 100 MG
     Route: 041
     Dates: start: 20200206, end: 20200206
  4. AI SU [Suspect]
     Active Substance: DOCETAXEL
     Indication: BREAST CANCER FEMALE
     Dosage: 5% GS 500 ML + AI SU 100 MG
     Route: 041
     Dates: start: 20200206, end: 20200206

REACTIONS (1)
  - White blood cell count decreased [Recovered/Resolved]

NARRATIVE: CASE EVENT DATE: 20200214
